FAERS Safety Report 7159044-1 (Version None)
Quarter: 2010Q4

REPORT INFORMATION
  Report Type: 
  Country: None (occurrence: None)
  Receive Date: 20101214
  Receipt Date: 20101203
  Transmission Date: 20110411
  Serious: Yes (Other)
  Sender: FDA-Public Use
  Company Number: US-ELI_LILLY_AND_COMPANY-US201012001418

PATIENT
  Sex: Male
  Weight: 121.54 kg

DRUGS (7)
  1. BYETTA [Suspect]
     Indication: TYPE 2 DIABETES MELLITUS
     Dosage: 5 UG, 2/D
     Route: 058
     Dates: start: 20060101
  2. BYETTA [Suspect]
     Dosage: 10 UG, 2/D
     Route: 058
     Dates: end: 20101001
  3. BYETTA [Suspect]
     Dosage: 10 UG, 2/D
     Dates: start: 20101101
  4. INSULIN [Concomitant]
     Indication: BLOOD GLUCOSE INCREASED
  5. METFORMIN [Concomitant]
     Indication: PRODUCT USED FOR UNKNOWN INDICATION
     Dosage: 1 G, 2/D
  6. ACTOS [Concomitant]
     Indication: PRODUCT USED FOR UNKNOWN INDICATION
     Dosage: 30 MG, UNK
  7. LISINOPRIL [Concomitant]
     Indication: PRODUCT USED FOR UNKNOWN INDICATION

REACTIONS (17)
  - BLOOD CREATININE INCREASED [None]
  - BLOOD GLUCOSE DECREASED [None]
  - BLOOD GLUCOSE INCREASED [None]
  - DECREASED APPETITE [None]
  - DIZZINESS [None]
  - DRUG INEFFECTIVE [None]
  - FALL [None]
  - FLUID RETENTION [None]
  - INTENTIONAL DRUG MISUSE [None]
  - MALAISE [None]
  - MOBILITY DECREASED [None]
  - PAIN [None]
  - RENAL DISORDER [None]
  - RIB FRACTURE [None]
  - SWELLING [None]
  - SYNCOPE [None]
  - WEIGHT DECREASED [None]
